FAERS Safety Report 10384728 (Version 1)
Quarter: 2014Q3

REPORT INFORMATION
  Report Type: Spontaneous
  Country: CN (occurrence: CN)
  Receive Date: 20140814
  Receipt Date: 20140814
  Transmission Date: 20150326
  Serious: Yes (Hospitalization, Other)
  Sender: FDA-Public Use
  Company Number: CN-PAR PHARMACEUTICAL, INC-2014SCPR009329

PATIENT

DRUGS (1)
  1. KETALAR [Suspect]
     Active Substance: KETAMINE HYDROCHLORIDE
     Indication: SUBSTANCE USE
     Dosage: UNK UNK, UNKNOWN
     Route: 045

REACTIONS (11)
  - Renal impairment [Recovered/Resolved]
  - Hepatic function abnormal [Recovered/Resolved]
  - Hypophagia [None]
  - Renal failure [None]
  - Nephropathy [Recovered/Resolved]
  - Hydronephrosis [Recovered/Resolved]
  - Proteinuria [None]
  - Drug abuse [Unknown]
  - Cystitis [Unknown]
  - Back pain [None]
  - Urinary tract infection [None]
